FAERS Safety Report 5702604-2 (Version None)
Quarter: 2008Q2

REPORT INFORMATION
  Report Type: 
  Country: None (occurrence: None)
  Receive Date: 20080411
  Receipt Date: 20080331
  Transmission Date: 20081010
  Serious: Yes (Other)
  Sender: FDA-Public Use
  Company Number: US-JNJFOC-20080403058

PATIENT
  Sex: Male
  Weight: 100.34 kg

DRUGS (6)
  1. TRAMADOL HYDROCHLORIDE [Suspect]
     Indication: OSTEOARTHRITIS
     Route: 048
  2. MELOXICAM [Suspect]
     Indication: OSTEOARTHRITIS
     Route: 048
  3. AVALIDE [Concomitant]
     Route: 065
  4. ASTELIN [Concomitant]
     Route: 065
  5. NASALCROM [Concomitant]
     Route: 065
  6. ACETAMINOPHEN [Concomitant]
     Route: 065

REACTIONS (3)
  - BONE DEBRIDEMENT [None]
  - JOINT EFFUSION [None]
  - SINUSITIS [None]
